FAERS Safety Report 5466882-X (Version None)
Quarter: 2007Q3

REPORT INFORMATION
  Report Type: 
  Country: None (occurrence: None)
  Receive Date: 20070920
  Receipt Date: 20070907
  Transmission Date: 20080115
  Serious: Yes (Other)
  Sender: FDA-Public Use
  Company Number: 430011N07JPN

PATIENT
  Age: 36 Year
  Sex: Female

DRUGS (12)
  1. NOVANTRONE [Suspect]
     Dosage: INTRAVENOUS
     Route: 042
     Dates: start: 20061102, end: 20061108
  2. MYLOTARG [Suspect]
     Dosage: 9 MG/M2, 1 IN 1 DAYS, INTRAVENOUS, 9 MG/M2, 1 IN 1 DAYS, INTRAVENOUS
     Route: 042
     Dates: start: 20060825, end: 20060825
  3. MYLOTARG [Suspect]
     Dosage: 9 MG/M2, 1 IN 1 DAYS, INTRAVENOUS, 9 MG/M2, 1 IN 1 DAYS, INTRAVENOUS
     Route: 042
     Dates: start: 20060908, end: 20060908
  4. ENOCITABINE (ENOCITABINE) [Suspect]
     Dosage: INTRAVENOUS
     Route: 042
     Dates: start: 20061102, end: 20061108
  5. ETOPOSIDE [Suspect]
     Dosage: INTRAVENOUS
     Route: 042
     Dates: start: 20061102, end: 20061108
  6. BACTRIM [Concomitant]
  7. FLUCONAZOLE [Concomitant]
  8. MELOXICAM [Concomitant]
  9. NIZATIDINE [Concomitant]
  10. RILMAZAFONE [Concomitant]
  11. POLYMYXIN B SULFATE [Concomitant]
  12. FUROSEMIDE [Concomitant]

REACTIONS (14)
  - ACUTE MYELOID LEUKAEMIA [None]
  - ANAEMIA [None]
  - ANOREXIA [None]
  - CHOLECYSTITIS [None]
  - CHOLELITHIASIS [None]
  - FIBRIN DEGRADATION PRODUCTS INCREASED [None]
  - HYPOALBUMINAEMIA [None]
  - HYPOKALAEMIA [None]
  - NEUTROPHIL COUNT DECREASED [None]
  - OEDEMA [None]
  - PROTEIN URINE PRESENT [None]
  - SEPSIS [None]
  - WEIGHT INCREASED [None]
  - WHITE BLOOD CELL COUNT DECREASED [None]
